FAERS Safety Report 9461598 (Version 2)
Quarter: 2013Q3

REPORT INFORMATION
  Report Type: Spontaneous
  Country: FR (occurrence: FR)
  Receive Date: 20130816
  Receipt Date: 20130924
  Transmission Date: 20140515
  Serious: Yes (Hospitalization)
  Sender: FDA-Public Use
  Company Number: FR-ASTRAZENECA-2013SE62468

PATIENT
  Age: 24408 Day
  Sex: Male

DRUGS (7)
  1. INEXIUM [Suspect]
     Route: 048
  2. METHOTREXATE [Interacting]
     Indication: DIFFUSE LARGE B-CELL LYMPHOMA
     Route: 041
     Dates: start: 20130720, end: 20130720
  3. METHOTREXATE MYLAN (NON AZ PRODUCT) [Interacting]
     Indication: DIFFUSE LARGE B-CELL LYMPHOMA
     Route: 041
     Dates: start: 20130814, end: 20130814
  4. ROCEPHINE [Interacting]
     Route: 065
     Dates: start: 20130719, end: 20130720
  5. KEPPRA [Concomitant]
  6. SEROPLEX [Concomitant]
  7. MEDROL [Concomitant]

REACTIONS (3)
  - Drug interaction [Unknown]
  - Renal failure acute [Recovered/Resolved]
  - Chemotherapeutic drug level above therapeutic [Recovered/Resolved]
